FAERS Safety Report 10781435 (Version 1)
Quarter: 2015Q1

REPORT INFORMATION
  Report Type: Spontaneous
  Country: JP (occurrence: JP)
  Receive Date: 20150210
  Receipt Date: 20150210
  Transmission Date: 20150721
  Serious: Yes (Other)
  Sender: FDA-Public Use
  Company Number: JP-ASTRAZENECA-2015SE12465

PATIENT
  Age: 57 Year
  Sex: Male
  Weight: 80 kg

DRUGS (14)
  1. CRESTOR [Suspect]
     Active Substance: ROSUVASTATIN CALCIUM
     Indication: DYSLIPIDAEMIA
     Route: 048
  2. CRESTOR [Suspect]
     Active Substance: ROSUVASTATIN CALCIUM
     Indication: DYSLIPIDAEMIA
     Route: 048
     Dates: start: 20080709
  3. DELLEGRA [Concomitant]
     Active Substance: FEXOFENADINE HYDROCHLORIDE\PSEUDOEPHEDRINE HYDROCHLORIDE
     Dosage: DOSE UNKNOWN
     Route: 048
     Dates: start: 20150114, end: 20150125
  4. MEDICON [Concomitant]
     Active Substance: DEXTROMETHORPHAN HYDROBROMIDE
     Dosage: DOSE UNKNOWN
     Route: 048
     Dates: start: 20150114, end: 20150123
  5. SEIBULE [Concomitant]
     Active Substance: MIGLITOL
     Dosage: DOSE UNKNOWN
     Route: 048
     Dates: start: 20130306
  6. FEBURIC [Concomitant]
     Active Substance: FEBUXOSTAT
     Dosage: DOSE UNKNOWN
     Route: 048
     Dates: start: 20140114
  7. MUCODYNE [Concomitant]
     Active Substance: CARBOCYSTEINE
     Dosage: DOSE UNKNOWN
     Route: 048
     Dates: start: 20150114, end: 20150123
  8. OLMETEC [Concomitant]
     Active Substance: OLMESARTAN MEDOXOMIL
     Dosage: DOSE UNKNOWN
     Route: 048
     Dates: start: 20140620
  9. BEZATOL SR [Concomitant]
     Active Substance: BEZAFIBRATE
     Dosage: DOSE UNKNOWN
     Route: 048
     Dates: start: 20130402
  10. URSO [Concomitant]
     Active Substance: URSODIOL
     Dosage: DOSE UNKNOWN
     Route: 048
     Dates: start: 20110609
  11. SYMBICORT [Suspect]
     Active Substance: BUDESONIDE\FORMOTEROL FUMARATE DIHYDRATE
     Indication: UPPER RESPIRATORY TRACT INFLAMMATION
     Dosage: 1 DF, TWO TIMES A DAY
     Route: 055
     Dates: start: 20150119, end: 20150120
  12. REBAMIPIDE [Concomitant]
     Active Substance: REBAMIPIDE
     Dosage: DOSE UNKNOWN
     Route: 048
     Dates: start: 20081216
  13. LOTRIGA [Concomitant]
     Active Substance: OMEGA-3-ACID ETHYL ESTERS
     Dosage: DOSE UNKNOWN
     Route: 048
     Dates: start: 20130922
  14. CLARITH [Concomitant]
     Active Substance: CLARITHROMYCIN
     Dosage: DOSE UNKNOWN
     Route: 065
     Dates: start: 20150114, end: 20150125

REACTIONS (4)
  - Seizure [Recovered/Resolved]
  - Off label use [Unknown]
  - Headache [Recovered/Resolved]
  - Muscle spasms [Unknown]

NARRATIVE: CASE EVENT DATE: 20150119
